FAERS Safety Report 6713712-1 (Version None)
Quarter: 2010Q2

REPORT INFORMATION
  Report Type: 
  Country: None (occurrence: None)
  Receive Date: 20100506
  Receipt Date: 20100426
  Transmission Date: 20101027
  Serious: Yes (Other)
  Sender: FDA-Public Use
  Company Number: CA-PFIZER INC-2010052905

PATIENT
  Age: 65 Year
  Sex: Female

DRUGS (2)
  1. ZELDOX [Suspect]
     Indication: BIPOLAR I DISORDER
     Dosage: 120 MG, 2X/DAY
  2. EPIVAL [Concomitant]
     Dosage: UNK

REACTIONS (2)
  - DEPRESSED LEVEL OF CONSCIOUSNESS [None]
  - MIOSIS [None]
